FAERS Safety Report 8367341-7 (Version None)
Quarter: 2012Q2

REPORT INFORMATION
  Report Type: 
  Country: None (occurrence: None)
  Receive Date: 20120517
  Receipt Date: 20120510
  Transmission Date: 20120825
  Serious: Yes (Other)
  Sender: FDA-Public Use
  Company Number: US-PFIZER INC-2012117067

PATIENT
  Sex: Female

DRUGS (1)
  1. PROTONIX [Suspect]
     Dosage: UNK
     Route: 048
     Dates: start: 20070101

REACTIONS (19)
  - NERVOUS SYSTEM DISORDER [None]
  - TACHYCARDIA [None]
  - LIBIDO DECREASED [None]
  - HYPERTENSION [None]
  - HYPOKINESIA [None]
  - MEMORY IMPAIRMENT [None]
  - HEADACHE [None]
  - MUSCULOSKELETAL PAIN [None]
  - TREMOR [None]
  - VERTIGO [None]
  - CONFUSIONAL STATE [None]
  - DRY MOUTH [None]
  - INSOMNIA [None]
  - MUSCLE SPASMS [None]
  - HYPERSENSITIVITY [None]
  - ANXIETY [None]
  - NEUROPATHY PERIPHERAL [None]
  - CONVULSION [None]
  - SPEECH DISORDER [None]
